FAERS Safety Report 8999337 (Version 2)
Quarter: 2013Q2

REPORT INFORMATION
  Report Type: Spontaneous
  Country: US (occurrence: US)
  Receive Date: 20130103
  Receipt Date: 20130508
  Transmission Date: 20140414
  Serious: No
  Sender: FDA-Public Use
  Company Number: US-009507513-1301USA000486

PATIENT
  Sex: Male

DRUGS (3)
  1. PROVENTIL [Suspect]
     Indication: DYSPNOEA
     Dosage: UNK
     Route: 055
  2. SINGULAIR [Concomitant]
  3. DICLOFLEX [Concomitant]

REACTIONS (1)
  - Dyspnoea exertional [Not Recovered/Not Resolved]
